FAERS Safety Report 6881811-X (Version None)
Quarter: 2010Q3

REPORT INFORMATION
  Report Type: 
  Country: None (occurrence: None)
  Receive Date: 20100728
  Receipt Date: 20100728
  Transmission Date: 20110219
  Serious: No
  Sender: FDA-Public Use
  Company Number: None

PATIENT
  Sex: Male
  Weight: 90.72 kg

DRUGS (7)
  1. ENALAPRIL MALEATE [Suspect]
     Indication: HYPERTENSION
     Dosage: TK ONCE PO QAM
     Route: 048
     Dates: start: 20100325, end: 20100719
  2. REYATAZ [Concomitant]
  3. NORVIR [Concomitant]
  4. AMLODIPINE [Concomitant]
  5. HYDROCHLOROTHIAZIDE [Concomitant]
  6. TRUVADA [Concomitant]
  7. ASPIRIN [Concomitant]

REACTIONS (5)
  - ANGIOEDEMA [None]
  - CONFUSIONAL STATE [None]
  - DRUG DOSE OMISSION [None]
  - RASH [None]
  - WRONG DRUG ADMINISTERED [None]
